FAERS Safety Report 7810523-0 (Version None)
Quarter: 2011Q4

REPORT INFORMATION
  Report Type: 
  Country: None (occurrence: None)
  Receive Date: 20111013
  Receipt Date: 20111006
  Transmission Date: 20120403
  Serious: Yes (Death)
  Sender: FDA-Public Use
  Company Number: GB-ROCHE-1001340

PATIENT
  Sex: Male

DRUGS (5)
  1. BENDROFLUAZIDE [Concomitant]
  2. VITAMINS NOS [Concomitant]
  3. LUCENTIS [Suspect]
     Indication: PRODUCT USED FOR UNKNOWN INDICATION
     Route: 050
  4. MYCOPHENOLATE MOFETIL [Concomitant]
  5. ELOCON [Concomitant]

REACTIONS (1)
  - MYOCARDIAL INFARCTION [None]
